FAERS Safety Report 9306170 (Version 3)
Quarter: 2013Q3

REPORT INFORMATION
  Report Type: Spontaneous
  Country: US (occurrence: US)
  Receive Date: 20130523
  Receipt Date: 20130722
  Transmission Date: 20140515
  Serious: Yes (Other)
  Sender: FDA-Public Use
  Company Number: US-SANOFI-AVENTIS-2013SA052159

PATIENT
  Age: 89 Year
  Sex: Female
  Weight: 61.69 kg

DRUGS (5)
  1. LANTUS SOLOSTAR [Suspect]
     Indication: TYPE 2 DIABETES MELLITUS
     Dosage: AT BED TIME DOSE:36 UNIT(S)
     Route: 058
     Dates: start: 200003
  2. SOLOSTAR [Suspect]
     Indication: TYPE 2 DIABETES MELLITUS
     Dosage: START DATE: AT LEAST 5 YRS AGO
  3. NOVOLOG [Concomitant]
     Indication: TYPE 2 DIABETES MELLITUS
     Dosage: DOSE:8 UNIT(S)
     Route: 065
  4. METOPROLOL [Concomitant]
     Route: 048
  5. SIMVASTATIN [Concomitant]
     Indication: BLOOD CHOLESTEROL
     Route: 065

REACTIONS (4)
  - Macular degeneration [Unknown]
  - Cerebrovascular accident [Unknown]
  - Visual acuity reduced [Unknown]
  - Incorrect product storage [Unknown]
